FAERS Safety Report 8817963 (Version 1)
Quarter: 2012Q4

REPORT INFORMATION
  Report Type: 
  Country: RU (occurrence: RU)
  Receive Date: 20121001
  Receipt Date: 20121001
  Transmission Date: 20130627
  Serious: Yes (Hospitalization)
  Sender: FDA-Public Use
  Company Number: RU-ASTRAZENECA-2012SE73512

PATIENT
  Age: 19571 Day
  Sex: Male
  Weight: 60 kg

DRUGS (6)
  1. BRILINTA [Suspect]
     Indication: ACUTE CORONARY SYNDROME
     Route: 048
     Dates: start: 20120616
  2. BRILINTA [Suspect]
     Indication: ACUTE CORONARY SYNDROME
     Route: 048
     Dates: start: 20120616, end: 20120702
  3. BISOPROLOL [Concomitant]
     Indication: ACUTE CORONARY SYNDROME
     Route: 048
  4. ASPIRIN [Concomitant]
     Indication: ACUTE CORONARY SYNDROME
     Route: 048
  5. AMPRILAN [Concomitant]
     Indication: ACUTE CORONARY SYNDROME
     Route: 048
  6. ATORVASTATIN [Concomitant]
     Indication: ACUTE CORONARY SYNDROME
     Route: 048

REACTIONS (1)
  - Endocarditis [Recovering/Resolving]
